FAERS Safety Report 9851413 (Version 3)
Quarter: 2014Q2

REPORT INFORMATION
  Report Type: Report from Study
  Country: US (occurrence: US)
  Receive Date: 20140129
  Receipt Date: 20140415
  Transmission Date: 20141212
  Serious: Yes (Hospitalization)
  Sender: FDA-Public Use
  Company Number: US-ROCHE-1194566

PATIENT
  Age: 29 Year
  Sex: Female

DRUGS (46)
  1. RANIBIZUMAB [Suspect]
     Indication: AGE-RELATED MACULAR DEGENERATION
     Route: 050
     Dates: start: 20121003
  2. RANIBIZUMAB [Suspect]
     Indication: DIABETIC RETINOPATHY
     Route: 050
     Dates: start: 20121025
  3. RANIBIZUMAB [Suspect]
     Route: 050
     Dates: start: 20121127
  4. RANIBIZUMAB [Suspect]
     Route: 050
     Dates: start: 20121220
  5. RANIBIZUMAB [Suspect]
     Route: 050
     Dates: start: 20121017
  6. RANIBIZUMAB [Suspect]
     Route: 050
     Dates: start: 20130124
  7. RANIBIZUMAB [Suspect]
     Route: 050
     Dates: start: 20130422
  8. RANIBIZUMAB [Suspect]
     Route: 050
     Dates: start: 20130523
  9. RANIBIZUMAB [Suspect]
     Route: 050
     Dates: start: 20130919
  10. RANIBIZUMAB [Suspect]
     Route: 050
     Dates: start: 20140303
  11. AVASTIN [Suspect]
     Indication: PRODUCT USED FOR UNKNOWN INDICATION
     Dosage: ONE TIME TREATMENT
     Route: 050
     Dates: start: 20130920
  12. AVASTIN [Suspect]
     Dosage: ONE TIME TREATMENT
     Route: 050
     Dates: start: 20131107
  13. AVASTIN [Suspect]
     Dosage: ONE TIME TREATMENT
     Route: 050
     Dates: start: 20140313
  14. ETHINYL ESTRADIOL/NORETHINDRONE [Concomitant]
     Indication: PROPHYLAXIS
     Dosage: 1.5-.0.3/MG
     Route: 048
  15. TRAZODONE [Concomitant]
     Route: 048
  16. INSULIN ASPART [Concomitant]
     Dosage: 5/UNIT
     Route: 058
  17. JUNEL [Concomitant]
     Indication: PROPHYLAXIS
     Route: 048
  18. PREDNISOLONE ACETATE [Concomitant]
     Route: 065
     Dates: start: 20121011
  19. PREDNISOLONE ACETATE [Concomitant]
     Route: 065
  20. PREDNISOLONE ACETATE [Concomitant]
     Route: 065
     Dates: start: 20131115
  21. FLUCONAZOLE [Concomitant]
     Route: 048
     Dates: start: 20121119
  22. THYROXINE [Concomitant]
     Route: 048
     Dates: start: 20121218
  23. THYROXINE [Concomitant]
     Route: 048
  24. TOBRADEX [Concomitant]
     Route: 065
     Dates: start: 20130125
  25. INSULIN GLARGINE [Concomitant]
     Dosage: 35/UNITS
     Route: 058
  26. INSULIN GLARGINE [Concomitant]
     Dosage: 20 UNITS
     Route: 058
     Dates: start: 20130212
  27. PREGABALIN [Concomitant]
     Route: 048
  28. CYCLOPENTOLATE [Concomitant]
     Route: 065
  29. CYCLOPENTOLATE [Concomitant]
     Route: 065
  30. VENLAFAXINE [Concomitant]
     Route: 048
  31. VENLAFAXINE [Concomitant]
     Route: 048
     Dates: start: 20131104
  32. PROCHLORPERAZINE [Concomitant]
     Route: 048
     Dates: start: 20130209
  33. LANTUS [Concomitant]
     Dosage: 20 UNITS
     Route: 058
     Dates: start: 20130212
  34. ALEVE [Concomitant]
     Dosage: } 1 PER DAY
     Route: 048
     Dates: start: 20130322
  35. LYRICA [Concomitant]
     Route: 048
     Dates: start: 20130306
  36. KEFZOL [Concomitant]
     Route: 042
     Dates: start: 20131218
  37. DIFLUCAN [Concomitant]
     Route: 048
     Dates: start: 20140107
  38. OXYCONTIN [Concomitant]
     Route: 048
     Dates: start: 20140107
  39. LISINOPRIL [Concomitant]
     Indication: PROPHYLAXIS
     Route: 048
     Dates: start: 20140107
  40. PHENERGAN [Concomitant]
     Route: 048
     Dates: start: 20140107
  41. ULTRAM [Concomitant]
     Route: 048
     Dates: start: 20140107
  42. NOVOLOG [Concomitant]
     Dosage: 2-12 VIALS
     Route: 058
     Dates: start: 20131228
  43. PROMETHAZINE [Concomitant]
     Route: 048
     Dates: start: 20140107
  44. VANCOMYCIN [Concomitant]
     Route: 050
     Dates: start: 20140108
  45. INSULIN GLARGINE [Concomitant]
     Dosage: 35 UNITS
     Route: 058
  46. TEARS NATURALE [Concomitant]
     Dosage: }1 PER DAY
     Route: 050
     Dates: start: 20130618

REACTIONS (4)
  - Diabetic ketoacidosis [Recovered/Resolved]
  - Localised infection [Not Recovered/Not Resolved]
  - Renal impairment [Not Recovered/Not Resolved]
  - Abdominal discomfort [Recovered/Resolved]
